FAERS Safety Report 16042922 (Version 1)
Quarter: 2019Q1

REPORT INFORMATION
  Report Type: Spontaneous
  Country: US (occurrence: US)
  Receive Date: 20190306
  Receipt Date: 20190306
  Transmission Date: 20190418
  Serious: Yes (Death)
  Sender: FDA-Public Use
  Company Number: None

PATIENT
  Age: 37 Year
  Sex: Female
  Weight: 50 kg

DRUGS (2)
  1. MUCUS D [Suspect]
     Active Substance: GUAIFENESIN\PSEUDOEPHEDRINE HYDROCHLORIDE
     Indication: UPPER RESPIRATORY TRACT INFECTION
     Dates: start: 20181227, end: 20181229
  2. THIAMINE SUPPLEMENT [Concomitant]

REACTIONS (8)
  - Seizure like phenomena [None]
  - Hypertension [None]
  - Loss of consciousness [None]
  - Drug intolerance [None]
  - Brain oedema [None]
  - Respiratory arrest [None]
  - Brain death [None]
  - Vomiting [None]

NARRATIVE: CASE EVENT DATE: 20181230
